FAERS Safety Report 7798552-7 (Version None)
Quarter: 2011Q4

REPORT INFORMATION
  Report Type: 
  Country: None (occurrence: None)
  Receive Date: 20111005
  Receipt Date: 20110926
  Transmission Date: 20120403
  Serious: Yes (Other)
  Sender: FDA-Public Use
  Company Number: US-ASTRAZENECA-2011SE58165

PATIENT
  Age: 54 Year
  Sex: Female

DRUGS (1)
  1. SYMBICORT [Suspect]
     Route: 055

REACTIONS (3)
  - CEREBROVASCULAR ACCIDENT [None]
  - WRONG DRUG ADMINISTERED [None]
  - DEAFNESS UNILATERAL [None]
